FAERS Safety Report 7464565-8 (Version None)
Quarter: 2011Q2

REPORT INFORMATION
  Report Type: 
  Country: None (occurrence: None)
  Receive Date: 20110509
  Receipt Date: 20110426
  Transmission Date: 20111010
  Serious: No
  Sender: FDA-Public Use
  Company Number: US-JNJFOC-20110500067

PATIENT
  Sex: Female

DRUGS (13)
  1. PROZAC [Concomitant]
     Indication: STRESS
     Route: 048
  2. LASIX [Suspect]
     Indication: FLUID RETENTION
     Route: 048
  3. UNKNOWN MEDICATION [Concomitant]
     Dosage: MONDAY/WEDNESDAY/ FRIDAY
     Route: 048
  4. PRAVASTATIN [Concomitant]
     Indication: BLOOD CHOLESTEROL
     Route: 048
  5. FUROSEMIDE [Concomitant]
     Indication: FLUID RETENTION
     Route: 048
  6. SYNTHROID [Concomitant]
     Indication: THYROID DISORDER
     Route: 048
  7. FENTANYL-100 [Suspect]
     Indication: BACK INJURY
     Route: 062
  8. LYRICA [Concomitant]
     Indication: NEURALGIA
     Route: 048
  9. XANAX [Concomitant]
     Indication: SLEEP DISORDER
     Dosage: AT NIGHT
     Route: 048
  10. ZETIA [Concomitant]
     Indication: BLOOD CHOLESTEROL
     Route: 048
  11. TRILIPIX [Concomitant]
     Indication: BLOOD TRIGLYCERIDES
     Route: 048
  12. MOTRIN [Concomitant]
     Indication: ARTHRITIS
     Route: 048
  13. OXYCODONE [Concomitant]
     Indication: PAIN
     Dosage: 1 OR 2 TABLETS
     Route: 048

REACTIONS (6)
  - MIGRAINE [None]
  - PRODUCT QUALITY ISSUE [None]
  - BLOOD POTASSIUM DECREASED [None]
  - DRUG DISPENSING ERROR [None]
  - SINUSITIS [None]
  - INADEQUATE ANALGESIA [None]
